FAERS Safety Report 5239338-7 (Version None)
Quarter: 2007Q1

REPORT INFORMATION
  Report Type: 
  Country: None (occurrence: None)
  Receive Date: 20070214
  Receipt Date: 20070214
  Transmission Date: 20070707
  Serious: Yes (Hospitalization)
  Sender: FDA-Public Use
  Company Number: None

PATIENT
  Age: 80 Year
  Sex: Male
  Weight: 110.2241 kg

DRUGS (8)
  1. WARFARIN SODIUM [Suspect]
     Indication: ATRIAL FIBRILLATION
     Dosage: 4 MG DAILY PO
     Route: 048
     Dates: start: 20050901, end: 20070124
  2. LORTAB [Concomitant]
  3. DIGOXIN [Concomitant]
  4. M.V.I. [Concomitant]
  5. OMEPRAZOLE [Concomitant]
  6. SIMVASTATIN [Concomitant]
  7. HUMULIN 70/30 [Concomitant]
  8. METOPROLOL SUCCINATE [Concomitant]

REACTIONS (3)
  - DRUG TOXICITY [None]
  - GASTRIC ULCER [None]
  - HAEMATOCHEZIA [None]
